FAERS Safety Report 14151656 (Version 1)
Quarter: 2017Q4

REPORT INFORMATION
  Report Type: Spontaneous
  Country: US (occurrence: None)
  Receive Date: 20171101
  Receipt Date: 20171101
  Transmission Date: 20180321
  Serious: Yes (Other)
  Sender: FDA-Public Use
  Company Number: None

PATIENT
  Sex: Female

DRUGS (3)
  1. FORTEO [Suspect]
     Active Substance: TERIPARATIDE
     Indication: LUMBAR SPINAL STENOSIS
     Route: 058
     Dates: start: 201707
  2. FORTEO [Suspect]
     Active Substance: TERIPARATIDE
     Indication: SCOLIOSIS
     Route: 058
     Dates: start: 201707
  3. FORTEO [Suspect]
     Active Substance: TERIPARATIDE
     Indication: LUMBAR RADICULOPATHY
     Route: 058
     Dates: start: 201707

REACTIONS (2)
  - Stomatitis [None]
  - Dry mouth [None]
